FAERS Safety Report 15854175 (Version 2)
Quarter: 2019Q1

REPORT INFORMATION
  Report Type: Spontaneous
  Country: US (occurrence: US)
  Receive Date: 20190122
  Receipt Date: 20190212
  Transmission Date: 20190417
  Serious: Yes (Hospitalization, Other)
  Sender: FDA-Public Use
  Company Number: US-ASTRAZENECA-2019SE08446

PATIENT
  Age: 78 Year
  Sex: Male
  Weight: 74.8 kg

DRUGS (1)
  1. TUDORZA PRESSAIR [Suspect]
     Active Substance: ACLIDINIUM BROMIDE
     Indication: EMPHYSEMA
     Dosage: 400UG/INHAL TWO TIMES A DAY
     Route: 055

REACTIONS (8)
  - Renal cancer [Unknown]
  - Lung neoplasm malignant [Unknown]
  - Cancer pain [Unknown]
  - Dyspnoea [Unknown]
  - Device issue [Unknown]
  - Myocardial infarction [Unknown]
  - Metastases to spine [Unknown]
  - Device malfunction [Unknown]

NARRATIVE: CASE EVENT DATE: 201801
